FAERS Safety Report 9308823 (Version 2)
Quarter: 2015Q3

REPORT INFORMATION
  Report Type: Spontaneous
  Country: US (occurrence: US)
  Receive Date: 20130524
  Receipt Date: 20150710
  Transmission Date: 20151125
  Serious: Yes (Other)
  Sender: FDA-Public Use
  Company Number: US-ROCHE-1046920

PATIENT
  Sex: Male
  Weight: 88.53 kg

DRUGS (1)
  1. ACCUTANE [Suspect]
     Active Substance: ISOTRETINOIN
     Indication: ACNE
     Route: 065
     Dates: start: 200001, end: 200012

REACTIONS (5)
  - Inflammatory bowel disease [Unknown]
  - Depression [Unknown]
  - Intestinal haemorrhage [Unknown]
  - Irritable bowel syndrome [Unknown]
  - Colitis ulcerative [Unknown]

NARRATIVE: CASE EVENT DATE: 2000
